FAERS Safety Report 10065022 (Version 2)
Quarter: 2014Q2

REPORT INFORMATION
  Report Type: Report from Study
  Country: IT (occurrence: IT)
  Receive Date: 20140408
  Receipt Date: 20140408
  Transmission Date: 20141212
  Serious: Yes (Hospitalization)
  Sender: FDA-Public Use
  Company Number: IT-IPSEN BIOPHARMACEUTICALS, INC.-2009-3996

PATIENT
  Age: 68 Year
  Sex: Female
  Weight: 58 kg

DRUGS (6)
  1. LANREOTIDE AUTOGEL [Suspect]
     Indication: NEUROENDOCRINE TUMOUR
     Route: 058
     Dates: start: 20090812
  2. COTAREG [Concomitant]
     Indication: HYPERTENSION
     Route: 048
     Dates: start: 2003
  3. ATENOL [Concomitant]
     Indication: HYPERTENSION
     Route: 048
     Dates: start: 2003
  4. COUMADIN [Concomitant]
     Indication: THROMBOSIS
     Route: 048
     Dates: start: 20080516
  5. COZAAR [Concomitant]
     Indication: HYPERTENSION
     Route: 048
     Dates: start: 2003
  6. CARDIRENE [Concomitant]
     Indication: HYPERTENSION
     Route: 048
     Dates: start: 2003

REACTIONS (1)
  - Tumour necrosis [Recovered/Resolved with Sequelae]
